FAERS Safety Report 10434813 (Version 1)
Quarter: 2014Q3

REPORT INFORMATION
  Report Type: Spontaneous
  Country: US (occurrence: None)
  Receive Date: 20140815
  Receipt Date: 20140815
  Transmission Date: 20150326
  Serious: No
  Sender: FDA-Public Use
  Company Number: 2014TUS003056

PATIENT
  Age: 24 Year
  Sex: Male

DRUGS (3)
  1. BRINTELLIX [Suspect]
     Active Substance: VORTIOXETINE HYDROBROMIDE
     Indication: MAJOR DEPRESSION
     Route: 048
     Dates: start: 20140409
  2. WELLBUTRIN [Suspect]
     Active Substance: BUPROPION HYDROCHLORIDE
     Indication: MAJOR DEPRESSION
     Route: 048
     Dates: start: 20140315
  3. REMERON [Concomitant]
     Active Substance: MIRTAZAPINE

REACTIONS (1)
  - Muscle tightness [None]

NARRATIVE: CASE EVENT DATE: 20140411
